FAERS Safety Report 25675109 (Version 1)
Quarter: 2025Q3

REPORT INFORMATION
  Report Type: Spontaneous
  Country: CN (occurrence: CN)
  Receive Date: 20250813
  Receipt Date: 20250813
  Transmission Date: 20251021
  Serious: Yes (Hospitalization)
  Sender: ANI
  Company Number: None

PATIENT
  Age: 31 Year
  Sex: Male
  Weight: 68 kg

DRUGS (3)
  1. FLUVOXAMINE MALEATE [Suspect]
     Active Substance: FLUVOXAMINE MALEATE
     Indication: Generalised anxiety disorder
     Route: 048
     Dates: start: 20250712, end: 20250718
  2. ESTAZOLAM [Concomitant]
     Active Substance: ESTAZOLAM
     Indication: Generalised anxiety disorder
     Route: 048
     Dates: start: 20250719
  3. FLUVOXAMINE MALEATE [Suspect]
     Active Substance: FLUVOXAMINE MALEATE
     Indication: Generalised anxiety disorder
     Route: 048
     Dates: start: 20250718

REACTIONS (1)
  - Hepatic enzyme increased [Unknown]

NARRATIVE: CASE EVENT DATE: 20250731
